FAERS Safety Report 6779323-7 (Version None)
Quarter: 2010Q2

REPORT INFORMATION
  Report Type: 
  Country: None (occurrence: None)
  Receive Date: 20100618
  Receipt Date: 20100607
  Transmission Date: 20101027
  Serious: Yes (Other)
  Sender: FDA-Public Use
  Company Number: PHHY2010JP35759

PATIENT
  Sex: Female

DRUGS (7)
  1. GLEEVEC [Suspect]
     Indication: CHRONIC MYELOID LEUKAEMIA
     Dosage: 400 MG DAILY
     Route: 048
     Dates: start: 20090716, end: 20090805
  2. ACINON [Concomitant]
     Indication: CHRONIC MYELOID LEUKAEMIA
     Dosage: 300MG
     Route: 048
     Dates: start: 20090716, end: 20090818
  3. SELBEX [Concomitant]
     Indication: CHRONIC MYELOID LEUKAEMIA
     Dosage: 1G
     Route: 048
     Dates: start: 20090716, end: 20090818
  4. LASIX [Concomitant]
     Indication: CHRONIC MYELOID LEUKAEMIA
     Dosage: 20MG
     Route: 048
     Dates: start: 20090728, end: 20090730
  5. GENINAX [Concomitant]
     Indication: CHRONIC MYELOID LEUKAEMIA
     Dosage: UNK
     Route: 048
     Dates: start: 20090804, end: 20090811
  6. FLAVERIC [Concomitant]
     Indication: CHRONIC MYELOID LEUKAEMIA
     Dosage: UNK
     Route: 048
     Dates: start: 20090804, end: 20090811
  7. MUCODYNE [Concomitant]
     Indication: CHRONIC MYELOID LEUKAEMIA
     Route: 048

REACTIONS (2)
  - EOSINOPHILIC PNEUMONIA [None]
  - RASH [None]
